FAERS Safety Report 14398185 (Version 2)
Quarter: 2018Q1

REPORT INFORMATION
  Report Type: Spontaneous
  Country: CN (occurrence: CN)
  Receive Date: 20180116
  Receipt Date: 20180119
  Transmission Date: 20180509
  Serious: Yes (Death, Other)
  Sender: FDA-Public Use
  Company Number: CN-009507513-1801CHN005784

PATIENT
  Age: 62 Year
  Sex: Male

DRUGS (6)
  1. CEFOPERAZONE SODIUM (+) SULBACTAM SODIUM [Suspect]
     Active Substance: CEFOPERAZONE SODIUM\SULBACTAM SODIUM
     Indication: BODY TEMPERATURE INCREASED
  2. TEICOPLANIN [Suspect]
     Active Substance: TEICOPLANIN
     Indication: BODY TEMPERATURE INCREASED
  3. TIGECYCLINE. [Suspect]
     Active Substance: TIGECYCLINE
     Indication: BODY TEMPERATURE INCREASED
  4. IMIPENEM AND CILASTATIN [Suspect]
     Active Substance: CILASTATIN SODIUM\IMIPENEM
     Indication: ANTI-INFECTIVE THERAPY
  5. FOSFOMYCIN [Suspect]
     Active Substance: FOSFOMYCIN
     Indication: BODY TEMPERATURE INCREASED
  6. CANCIDAS [Suspect]
     Active Substance: CASPOFUNGIN ACETATE

REACTIONS (2)
  - Drug ineffective [Fatal]
  - Klebsiella infection [Fatal]

NARRATIVE: CASE EVENT DATE: 2016
